FAERS Safety Report 15707919 (Version 1)
Quarter: 2018Q4

REPORT INFORMATION
  Report Type: Spontaneous
  Country: US (occurrence: US)
  Receive Date: 20181128
  Receipt Date: 20181128
  Transmission Date: 20190205
  Serious: No
  Sender: FDA-Public Use
  Company Number: None

PATIENT
  Sex: Male

DRUGS (1)
  1. ZYTIGA TAB 500MG [Suspect]
     Active Substance: ABIRATERONE ACETATE
     Route: 048
     Dates: start: 20180515

REACTIONS (5)
  - Unevaluable event [None]
  - Hypertension [None]
  - Product dose omission [None]
  - Cough [None]
  - Chest X-ray [None]
